FAERS Safety Report 13745097 (Version 1)
Quarter: 2017Q3

REPORT INFORMATION
  Report Type: Spontaneous
  Country: US (occurrence: US)
  Receive Date: 20170711
  Receipt Date: 20170711
  Transmission Date: 20171127
  Serious: Yes (Other)
  Sender: FDA-Public Use
  Company Number: None

PATIENT
  Age: 88 Year
  Sex: Male
  Weight: 81 kg

DRUGS (5)
  1. ELECTRIC WHEELCHAIR [Concomitant]
  2. NEBULIZER [Concomitant]
     Active Substance: DEVICE
  3. PACEMARER AND STANDING FRAME [Concomitant]
  4. OXYGEN. [Concomitant]
     Active Substance: OXYGEN
  5. BEVESPI AEROSPHERE [Suspect]
     Active Substance: FORMOTEROL FUMARATE\GLYCOPYRROLATE
     Indication: PNEUMONIA
     Dosage: OTHER STRENGTH:MCG;QUANTITY:28 PUFF(S);?
     Route: 055
     Dates: start: 20170629, end: 20170711

REACTIONS (1)
  - Anaphylactic reaction [None]

NARRATIVE: CASE EVENT DATE: 20170709
